FAERS Safety Report 6989897-9 (Version None)
Quarter: 2010Q3

REPORT INFORMATION
  Report Type: 
  Country: None (occurrence: None)
  Receive Date: 20100916
  Receipt Date: 20100310
  Transmission Date: 20110219
  Serious: Yes (Other)
  Sender: FDA-Public Use
  Company Number: NO-PFIZER INC-2010031444

PATIENT
  Sex: Female

DRUGS (6)
  1. PREGABALIN [Suspect]
     Indication: EPILEPSY
     Dosage: 450 MG, 1X/DAY
     Route: 064
  2. OXCARBAZEPINE [Suspect]
     Indication: EPILEPSY
     Dosage: 1200 MG, 1X/DAY DURING 1ST TRIMESTER
     Route: 064
  3. OXCARBAZEPINE [Suspect]
     Dosage: 2400 MG, 1X/DAY DURING PREGNANCY
  4. LEVETIRACETAM [Suspect]
     Indication: EPILEPSY
     Dosage: 500 MG, 1X/DAY AT CONCEPTION
  5. LEVETIRACETAM [Suspect]
     Dosage: 1000 MG, 1X/DAY DURING 1ST TRIMESTER
     Route: 064
  6. LEVETIRACETAM [Suspect]
     Dosage: 500 MG, 1X/DAY THIRD TRIMESTER

REACTIONS (3)
  - ANTICONVULSANT DRUG LEVEL DECREASED [None]
  - COMPLEX PARTIAL SEIZURES [None]
  - GRAND MAL CONVULSION [None]
